FAERS Safety Report 13593821 (Version 2)
Quarter: 2017Q2

REPORT INFORMATION
  Report Type: Report from Study
  Country: US (occurrence: US)
  Receive Date: 20170530
  Receipt Date: 20170613
  Transmission Date: 20170830
  Serious: Yes (Hospitalization, Other)
  Sender: FDA-Public Use
  Company Number: US-BAYER-2016-088238

PATIENT
  Age: 64 Year
  Sex: Female
  Weight: 104.31 kg

DRUGS (18)
  1. ADEMPAS [Suspect]
     Active Substance: RIOCIGUAT
     Indication: PULMONARY HYPERTENSION
     Dosage: 1 MG, TID
     Route: 048
  2. ADEMPAS [Suspect]
     Active Substance: RIOCIGUAT
     Indication: PULMONARY HYPERTENSION
     Dosage: 2 MG, TID
     Route: 048
  3. UPTRAVI [Suspect]
     Active Substance: SELEXIPAG
     Dosage: 1200 ?G, BID
  4. COUMADIN [Concomitant]
     Active Substance: WARFARIN SODIUM
     Dosage: UNK
  5. UPTRAVI [Suspect]
     Active Substance: SELEXIPAG
     Dosage: 1400 ?G, BID
  6. ADEMPAS [Suspect]
     Active Substance: RIOCIGUAT
     Indication: PULMONARY HYPERTENSION
     Dosage: 1.5 MG, TID
     Route: 048
  7. ADEMPAS [Suspect]
     Active Substance: RIOCIGUAT
     Indication: PULMONARY HYPERTENSION
     Dosage: UNK
     Route: 048
     Dates: start: 20160418
  8. ADEMPAS [Suspect]
     Active Substance: RIOCIGUAT
     Indication: PULMONARY HYPERTENSION
     Dosage: 2.5 MG, TID
     Route: 048
  9. ADEMPAS [Suspect]
     Active Substance: RIOCIGUAT
     Indication: PULMONARY HYPERTENSION
     Dosage: 2 MG, TID
     Route: 048
  10. ADEMPAS [Suspect]
     Active Substance: RIOCIGUAT
     Indication: PULMONARY HYPERTENSION
     Dosage: 2 MG, TID
     Route: 048
  11. ADEMPAS [Suspect]
     Active Substance: RIOCIGUAT
     Indication: PULMONARY HYPERTENSION
     Dosage: 2 MG, TID
     Route: 048
  12. UPTRAVI [Suspect]
     Active Substance: SELEXIPAG
     Dosage: 1600 ?G, BID
  13. AMLODIPINE [Concomitant]
     Active Substance: AMLODIPINE BESYLATE
     Dosage: UNK
  14. ADEMPAS [Suspect]
     Active Substance: RIOCIGUAT
     Indication: PULMONARY HYPERTENSION
     Dosage: 2 MG, TID
     Route: 048
  15. UPTRAVI [Suspect]
     Active Substance: SELEXIPAG
     Dosage: 1400 ?G, BID
     Dates: start: 20170114
  16. UPTRAVI [Suspect]
     Active Substance: SELEXIPAG
     Dosage: UNK
  17. OPSUMIT [Concomitant]
     Active Substance: MACITENTAN
     Dosage: UNK
  18. WARFARIN [Concomitant]
     Active Substance: WARFARIN
     Dosage: UNK

REACTIONS (39)
  - Respiratory failure [None]
  - Hospitalisation [Unknown]
  - Oedema peripheral [Unknown]
  - Headache [Recovering/Resolving]
  - Asthenia [None]
  - Muscular weakness [Unknown]
  - Urinary tract infection [None]
  - Urinary tract infection [None]
  - Dizziness [Unknown]
  - Memory impairment [Unknown]
  - Headache [Not Recovered/Not Resolved]
  - Musculoskeletal pain [Not Recovered/Not Resolved]
  - Asthenia [Unknown]
  - Restlessness [Unknown]
  - Musculoskeletal discomfort [Not Recovered/Not Resolved]
  - Myalgia [Unknown]
  - Diastolic hypotension [None]
  - Dyspepsia [Unknown]
  - Blood pressure decreased [None]
  - Chest pain [Unknown]
  - Diarrhoea [Not Recovered/Not Resolved]
  - Nausea [Unknown]
  - Discomfort [Unknown]
  - Abdominal pain upper [Unknown]
  - Fatigue [Not Recovered/Not Resolved]
  - Diarrhoea [Unknown]
  - Arthralgia [Unknown]
  - Post-traumatic pain [Unknown]
  - Insomnia [None]
  - Pain [Unknown]
  - Pneumonia [None]
  - Dyspnoea exertional [Recovering/Resolving]
  - Fatigue [None]
  - Blood pressure decreased [Unknown]
  - Feeling abnormal [Unknown]
  - Pain in jaw [Unknown]
  - Muscular weakness [None]
  - Headache [Unknown]
  - Adverse drug reaction [None]

NARRATIVE: CASE EVENT DATE: 2016
